FAERS Safety Report 6844646-X (Version None)
Quarter: 2010Q3

REPORT INFORMATION
  Report Type: 
  Country: None (occurrence: None)
  Receive Date: 20100715
  Receipt Date: 20100707
  Transmission Date: 20110219
  Serious: Yes (Hospitalization, Disabling, Other)
  Sender: FDA-Public Use
  Company Number: US-MERCK-0703USA04386

PATIENT
  Age: 79 Year
  Sex: Female
  Weight: 46 kg

DRUGS (2)
  1. FOSAMAX [Suspect]
     Indication: OSTEOPOROSIS
     Route: 048
     Dates: end: 20060130
  2. FOSAMAX [Suspect]
     Route: 048
     Dates: start: 19980108

REACTIONS (38)
  - APHTHOUS STOMATITIS [None]
  - ARTHRITIS [None]
  - BAROTRAUMA [None]
  - CARDIAC FAILURE CONGESTIVE [None]
  - CATARACT [None]
  - CERUMEN IMPACTION [None]
  - CHRONIC OBSTRUCTIVE PULMONARY DISEASE [None]
  - DEAFNESS NEUROSENSORY [None]
  - DEFORMITY [None]
  - DRUG HYPERSENSITIVITY [None]
  - ECCHYMOSIS [None]
  - FALL [None]
  - GINGIVAL PAIN [None]
  - HYDRONEPHROSIS [None]
  - HYPERTENSION [None]
  - IMPAIRED HEALING [None]
  - KIDNEY ENLARGEMENT [None]
  - LIMB INJURY [None]
  - LYMPHOEDEMA [None]
  - MOUTH ULCERATION [None]
  - NEURODERMATITIS [None]
  - OEDEMA PERIPHERAL [None]
  - ORAL TORUS [None]
  - OSTEOMYELITIS [None]
  - OSTEONECROSIS OF JAW [None]
  - POLLAKIURIA [None]
  - PULMONARY HYPERTENSION [None]
  - RADIUS FRACTURE [None]
  - RENAL ATROPHY [None]
  - SCOLIOSIS [None]
  - SENSITIVITY OF TEETH [None]
  - SKIN ULCER [None]
  - SPINAL COLUMN STENOSIS [None]
  - SPINAL OSTEOARTHRITIS [None]
  - THERMAL BURN [None]
  - TOOTHACHE [None]
  - URINARY INCONTINENCE [None]
  - WEIGHT DECREASED [None]
